FAERS Safety Report 11691276 (Version 1)
Quarter: 2015Q4

REPORT INFORMATION
  Report Type: Spontaneous
  Country: US (occurrence: US)
  Receive Date: 20151102
  Receipt Date: 20151102
  Transmission Date: 20160304
  Serious: No
  Sender: FDA-Public Use
  Company Number: CHPA2015US013001

PATIENT
  Age: 58 Year
  Sex: Male

DRUGS (1)
  1. VOLTAREN [Suspect]
     Active Substance: DICLOFENAC SODIUM
     Indication: TENDON RUPTURE
     Dosage: 4-5 G, QD
     Route: 061
     Dates: start: 201509

REACTIONS (3)
  - Inappropriate schedule of drug administration [Unknown]
  - Product use issue [Unknown]
  - Incorrect dose administered [Unknown]

NARRATIVE: CASE EVENT DATE: 201509
